FAERS Safety Report 13499631 (Version 1)
Quarter: 2017Q2

REPORT INFORMATION
  Report Type: Spontaneous
  Country: US (occurrence: US)
  Receive Date: 20170429
  Receipt Date: 20170429
  Transmission Date: 20170830
  Serious: Yes (Hospitalization)
  Sender: FDA-Public Use
  Company Number: None

PATIENT
  Age: 24 Year
  Sex: Male

DRUGS (2)
  1. WARFARIN [Suspect]
     Active Substance: WARFARIN
     Indication: PROTEIN C DEFICIENCY
     Dates: end: 20170329
  2. ENOXAPARIN [Suspect]
     Active Substance: ENOXAPARIN
     Indication: PROTEIN C DEFICIENCY
     Dates: end: 20170329

REACTIONS (2)
  - Haemorrhage [None]
  - Anaemia [None]

NARRATIVE: CASE EVENT DATE: 20170329
